FAERS Safety Report 7977865-X (Version None)
Quarter: 2011Q4

REPORT INFORMATION
  Report Type: 
  Country: None (occurrence: None)
  Receive Date: 20111214
  Receipt Date: 20111205
  Transmission Date: 20120403
  Serious: No
  Sender: FDA-Public Use
  Company Number: US-AMGEN-USASP2011060975

PATIENT
  Age: 62 Year
  Sex: Male
  Weight: 102.95 kg

DRUGS (3)
  1. FOLIC ACID [Concomitant]
  2. METHOTREXATE [Concomitant]
  3. ENBREL [Suspect]
     Indication: RHEUMATOID ARTHRITIS
     Dosage: 50 MG, QWK
     Dates: start: 20110811

REACTIONS (2)
  - RHEUMATOID ARTHRITIS [None]
  - DERMOID CYST [None]
